FAERS Safety Report 10570702 (Version 1)
Quarter: 2014Q4

REPORT INFORMATION
  Report Type: Spontaneous
  Country: US (occurrence: None)
  Receive Date: 20141106
  Receipt Date: 20141106
  Transmission Date: 20150529
  Serious: No
  Sender: FDA-Public Use
  Company Number: None

PATIENT
  Age: 54 Year
  Sex: Male

DRUGS (1)
  1. ENBREL [Suspect]
     Active Substance: ETANERCEPT
     Indication: PSORIASIS
     Dates: start: 20120730

REACTIONS (4)
  - Blindness transient [None]
  - Vision blurred [None]
  - Visual acuity reduced [None]
  - Uveitis [None]

NARRATIVE: CASE EVENT DATE: 20140904
